FAERS Safety Report 10396268 (Version 1)
Quarter: 2014Q1

REPORT INFORMATION
  Report Type: Spontaneous
  Country: DE (occurrence: None)
  Receive Date: 20130813
  Receipt Date: 20130813
  Transmission Date: 20141002
  Serious: Yes (Other)
  Sender: FDA-Public Use
  Company Number: 2012AT000207

PATIENT
  Age: 73 Year
  Sex: Male

DRUGS (1)
  1. EDEX [Suspect]
     Indication: PRODUCT USED FOR UNKNOWN INDICATION

REACTIONS (3)
  - Overdose [None]
  - Therapeutic response decreased [None]
  - Priapism [None]
